FAERS Safety Report 19901237 (Version 1)
Quarter: 2021Q3

REPORT INFORMATION
  Report Type: Report from Study
  Country: US (occurrence: US)
  Receive Date: 20210929
  Receipt Date: 20210929
  Transmission Date: 20211014
  Serious: Yes (Other)
  Sender: FDA-Public Use
  Company Number: US-SHIRE-US202002097AA

PATIENT
  Sex: Male

DRUGS (3)
  1. CUVITRU [Suspect]
     Active Substance: HUMAN IMMUNOGLOBULIN G
     Indication: PRIMARY IMMUNODEFICIENCY SYNDROME
     Dosage: 10 GRAM, 1X/WEEK
     Route: 065
  2. PREDNISONE. [Concomitant]
     Active Substance: PREDNISONE
     Indication: ADRENAL INSUFFICIENCY
     Dosage: UNK, AS REQ^D
  3. CORTISONE [Concomitant]
     Active Substance: CORTISONE
     Indication: ADRENAL INSUFFICIENCY
     Dosage: UNK, 1X/DAY:QD

REACTIONS (12)
  - Blood immunoglobulin G decreased [Unknown]
  - Blood urine present [Unknown]
  - Red blood cell sedimentation rate increased [Recovered/Resolved]
  - Atrial fibrillation [Unknown]
  - Malaise [Unknown]
  - Poor quality sleep [Unknown]
  - Fatigue [Unknown]
  - Malignant melanoma [Unknown]
  - Influenza like illness [Unknown]
  - Infusion site haemorrhage [Unknown]
  - Infusion site bruising [Unknown]
  - Seasonal allergy [Unknown]
